FAERS Safety Report 8060333-7 (Version None)
Quarter: 2012Q1

REPORT INFORMATION
  Report Type: 
  Country: None (occurrence: None)
  Receive Date: 20120119
  Receipt Date: 20120119
  Transmission Date: 20120608
  Serious: Yes (Hospitalization)
  Sender: FDA-Public Use
  Company Number: None

PATIENT
  Age: 86 Year
  Sex: Female
  Weight: 100.3 kg

DRUGS (9)
  1. METOPROLOL TARTRATE [Concomitant]
  2. MAXZIDE [Concomitant]
  3. NIACIN [Concomitant]
  4. POTASSIUM CHLORIDE [Concomitant]
  5. ASPIRIN [Suspect]
     Indication: CORONARY ARTERY DISEASE
     Dosage: 35MG DAILY PO CHRONIC
     Route: 048
  6. ALBUTEROL [Concomitant]
  7. ISOSORBIDE DINITRATE [Concomitant]
  8. MAGNESIUM OXIDE [Concomitant]
  9. SIMVASTATIN [Concomitant]

REACTIONS (3)
  - GASTRIC ULCER [None]
  - ANAEMIA [None]
  - UPPER GASTROINTESTINAL HAEMORRHAGE [None]
